FAERS Safety Report 8516638 (Version 2)
Quarter: 2014Q2

REPORT INFORMATION
  Report Type: Spontaneous
  Country: US (occurrence: US)
  Receive Date: 20120417
  Receipt Date: 20140623
  Transmission Date: 20141212
  Serious: No
  Sender: FDA-Public Use
  Company Number: US-ASTRAZENECA-2011SE69117

PATIENT
  Age: 73 Year
  Sex: Female
  Weight: 73.9 kg

DRUGS (10)
  1. NEXIUM [Suspect]
     Indication: GASTROOESOPHAGEAL REFLUX DISEASE
     Route: 048
  2. NEXIUM [Suspect]
     Indication: HIATUS HERNIA
     Route: 048
  3. NEXIUM [Suspect]
     Indication: GASTROOESOPHAGEAL REFLUX DISEASE
     Route: 048
  4. NEXIUM [Suspect]
     Indication: HIATUS HERNIA
     Route: 048
  5. NEXIUM [Suspect]
     Indication: GASTROOESOPHAGEAL REFLUX DISEASE
     Route: 048
     Dates: start: 2008
  6. NEXIUM [Suspect]
     Indication: HIATUS HERNIA
     Route: 048
     Dates: start: 2008
  7. DOXAZOSIN [Concomitant]
     Indication: BLOOD PRESSURE ABNORMAL
  8. VALTURNA [Concomitant]
     Indication: BLOOD PRESSURE ABNORMAL
  9. TEKTURNA HCT [Concomitant]
     Indication: BLOOD PRESSURE ABNORMAL
  10. DIOVAN [Concomitant]
     Indication: HYPERTENSION
     Dosage: BID

REACTIONS (12)
  - Dry skin [Not Recovered/Not Resolved]
  - Hot flush [Not Recovered/Not Resolved]
  - Weight decreased [Not Recovered/Not Resolved]
  - Hair texture abnormal [Not Recovered/Not Resolved]
  - Body height decreased [Unknown]
  - Dyspepsia [Unknown]
  - Foaming at mouth [Unknown]
  - Feeling abnormal [Unknown]
  - Hyperhidrosis [Not Recovered/Not Resolved]
  - Malaise [Unknown]
  - Diarrhoea [Unknown]
  - Drug dose omission [Unknown]
